FAERS Safety Report 15501280 (Version 1)
Quarter: 2018Q4

REPORT INFORMATION
  Report Type: Spontaneous
  Country: FR (occurrence: FR)
  Receive Date: 20181015
  Receipt Date: 20181015
  Transmission Date: 20190205
  Serious: Yes (Death, Hospitalization)
  Sender: FDA-Public Use
  Company Number: FR-PROVELL PHARMACEUTICALS-2056051

PATIENT
  Age: 50 Year
  Sex: Female
  Weight: 67 kg

DRUGS (1)
  1. EUTHYROX [Suspect]
     Active Substance: LEVOTHYROXINE SODIUM
     Indication: HYPOTHYROIDISM
     Route: 048
     Dates: start: 201703, end: 20171002

REACTIONS (5)
  - Headache [Fatal]
  - Hypertension [Fatal]
  - Disturbance in attention [Fatal]
  - Diffuse alopecia [Fatal]
  - Weight decreased [Fatal]

NARRATIVE: CASE EVENT DATE: 201703
